FAERS Safety Report 17499875 (Version 2)
Quarter: 2021Q4

REPORT INFORMATION
  Report Type: Report from Study
  Country: US (occurrence: US)
  Receive Date: 20200305
  Receipt Date: 20211004
  Transmission Date: 20220303
  Serious: Yes (Other)
  Sender: FDA-Public Use
  Company Number: US-KAMADA LIMITED-2020US001233

PATIENT

DRUGS (30)
  1. GLASSIA [Suspect]
     Active Substance: .ALPHA.1-PROTEINASE INHIBITOR HUMAN
     Indication: Alpha-1 antitrypsin deficiency
     Dosage: 60 MG/KG, 1/WEEK (1050 MG VIAL)
     Route: 042
     Dates: start: 20131030
  2. IBUPROFEN [Concomitant]
     Active Substance: IBUPROFEN
     Dosage: UNKNOWN
     Route: 065
  3. DIPHENHYDRAMINE [Concomitant]
     Active Substance: DIPHENHYDRAMINE
     Dosage: UNKNOWN
     Route: 065
  4. SODIUM CHLORIDE [Concomitant]
     Active Substance: SODIUM CHLORIDE
     Dosage: UNKNOWN
     Route: 065
  5. EPINEPHRINE [Concomitant]
     Active Substance: EPINEPHRINE
     Dosage: UNKNOWN, AURO-INJECTOR
     Route: 065
  6. SYNTHROID [Concomitant]
     Active Substance: LEVOTHYROXINE SODIUM
     Dosage: UNKNOWN
     Route: 065
  7. LIPITOR [Concomitant]
     Active Substance: ATORVASTATIN CALCIUM
     Dosage: UNKNOWN
     Route: 065
  8. SYMBICORT [Concomitant]
     Active Substance: BUDESONIDE\FORMOTEROL FUMARATE DIHYDRATE
     Dosage: UNKNOWN
     Route: 065
  9. CLARITHROMYCIN [Concomitant]
     Active Substance: CLARITHROMYCIN
     Dosage: UNKNOWN
     Route: 065
  10. PROCHLORPERAZINE EDISYLATE [Concomitant]
     Active Substance: PROCHLORPERAZINE EDISYLATE
     Dosage: UNKNOWN
     Route: 065
  11. COLACE [Concomitant]
     Active Substance: DOCUSATE SODIUM
     Dosage: UNKNOWN
     Route: 065
  12. ASPIRIN [Concomitant]
     Active Substance: ASPIRIN
     Dosage: UNKNOWN
     Route: 065
  13. CYMBALTA [Concomitant]
     Active Substance: DULOXETINE HYDROCHLORIDE
     Dosage: UNKNOWN
     Route: 065
  14. LORATADINE [Concomitant]
     Active Substance: LORATADINE
     Dosage: UNKNOWN
     Route: 065
  15. ALBUTEROL\IPRATROPIUM [Concomitant]
     Active Substance: ALBUTEROL\IPRATROPIUM
     Dosage: UNKNOWN
     Route: 065
  16. CALCIUM [Concomitant]
     Active Substance: CALCIUM
     Dosage: UNKNOWN
     Route: 065
  17. PEPCID [Concomitant]
     Active Substance: FAMOTIDINE
     Dosage: UNKNOWN
     Route: 065
  18. OXYGEN [Concomitant]
     Active Substance: OXYGEN
     Dosage: UNKNOWN
     Route: 065
  19. MUCINEX [Concomitant]
     Active Substance: GUAIFENESIN
     Dosage: UNKNOWN
     Route: 065
  20. FERROUS SULFATE [Concomitant]
     Active Substance: FERROUS SULFATE
     Dosage: UNKNOWN
     Route: 065
  21. HYDROMORPHONE [Concomitant]
     Active Substance: HYDROMORPHONE
     Dosage: UNKNOWN
     Route: 065
  22. SEROQUEL [Concomitant]
     Active Substance: QUETIAPINE FUMARATE
     Dosage: UNKNOWN
     Route: 065
  23. BISACODYL [Concomitant]
     Active Substance: BISACODYL
     Dosage: UNKNOWN
     Route: 065
  24. VITAMIN C [Concomitant]
     Active Substance: ASCORBIC ACID
     Dosage: UNKNOWN
     Route: 065
  25. TUMS [Concomitant]
     Active Substance: CALCIUM CARBONATE
     Dosage: UNKNOWN
     Route: 065
  26. POTASSIUM [Concomitant]
     Active Substance: POTASSIUM
     Dosage: UNKNOWN
     Route: 065
  27. CEFDINIR [Concomitant]
     Active Substance: CEFDINIR
     Dosage: UNKNOWN
     Route: 065
  28. CORTEF [Concomitant]
     Active Substance: HYDROCORTISONE
     Dosage: UNKNOWN
     Route: 065
  29. REMERON [Concomitant]
     Active Substance: MIRTAZAPINE
     Dosage: UNKNOWN
     Route: 065
  30. CHOLECALCIFEROL [Concomitant]
     Active Substance: CHOLECALCIFEROL
     Dosage: UNKNOWN
     Route: 065

REACTIONS (1)
  - Cellulitis [Unknown]
